FAERS Safety Report 9646114 (Version 5)
Quarter: 2014Q4

REPORT INFORMATION
  Report Type: Spontaneous
  Country: US (occurrence: US)
  Receive Date: 20131025
  Receipt Date: 20141104
  Transmission Date: 20150529
  Serious: Yes (Death, Hospitalization, Disabling, Other)
  Sender: FDA-Public Use
  Company Number: US-MERCK-1310USA011773

PATIENT
  Sex: Female
  Weight: 99.77 kg

DRUGS (1)
  1. JANUVIA [Suspect]
     Active Substance: SITAGLIPTIN PHOSPHATE
     Indication: TYPE 2 DIABETES MELLITUS
     Dosage: 100 MG, QD
     Route: 048
     Dates: start: 20091223, end: 20120713

REACTIONS (40)
  - Pneumonia [Unknown]
  - Hypoaesthesia [Unknown]
  - Venous ligation [Recovering/Resolving]
  - Splenic vein thrombosis [Recovering/Resolving]
  - Oedema peripheral [Unknown]
  - Dyspnoea [Unknown]
  - Gallbladder disorder [Unknown]
  - Gastric varices haemorrhage [Recovering/Resolving]
  - Lung disorder [Unknown]
  - Dysphagia [Recovering/Resolving]
  - Metastases to thorax [Unknown]
  - Musculoskeletal discomfort [Unknown]
  - Depression [Unknown]
  - Malignant pleural effusion [Unknown]
  - Rhinorrhoea [Unknown]
  - Cough [Unknown]
  - Herpes zoster [Unknown]
  - Oesophageal varices haemorrhage [Recovering/Resolving]
  - Upper gastrointestinal haemorrhage [Unknown]
  - Lymphadenopathy mediastinal [Unknown]
  - Sleep apnoea syndrome [Unknown]
  - Adenocarcinoma pancreas [Fatal]
  - Metastases to lung [Unknown]
  - Metastases to peritoneum [Unknown]
  - Malignant ascites [Unknown]
  - Pancytopenia [Unknown]
  - Pulmonary mass [Unknown]
  - Metastases to liver [Unknown]
  - Hepatic failure [Unknown]
  - Pulmonary mass [Unknown]
  - Neuropathy peripheral [Unknown]
  - Varicella [Unknown]
  - Therapeutic embolisation [Recovering/Resolving]
  - Type 1 diabetes mellitus [Unknown]
  - Arthritis [Unknown]
  - Paraesthesia [Unknown]
  - Dyspepsia [Unknown]
  - Anaemia [Unknown]
  - Dizziness [Unknown]
  - Barrett^s oesophagus [Unknown]

NARRATIVE: CASE EVENT DATE: 20110721
